FAERS Safety Report 21050444 (Version 2)
Quarter: 2022Q3

REPORT INFORMATION
  Report Type: Spontaneous
  Country: CA (occurrence: CA)
  Receive Date: 20220707
  Receipt Date: 20220913
  Transmission Date: 20221027
  Serious: Yes (Hospitalization, Other)
  Sender: FDA-Public Use
  Company Number: CA-CELLTRION INC.-2022CA010692

PATIENT

DRUGS (2)
  1. INFLECTRA [Suspect]
     Active Substance: INFLIXIMAB-DYYB
     Indication: Product used for unknown indication
     Dosage: 300 MG EVERY 8 WEEKS
     Route: 042
     Dates: start: 20200131
  2. COMIRNATY [Suspect]
     Active Substance: TOZINAMERAN
     Indication: COVID-19 immunisation
     Dosage: DOSE 2, SINGLE

REACTIONS (5)
  - Lymphadenopathy [Unknown]
  - Myocarditis [Unknown]
  - Pericarditis [Unknown]
  - Menstrual disorder [Unknown]
  - Menopause [Unknown]
